FAERS Safety Report 16218066 (Version 2)
Quarter: 2020Q2

REPORT INFORMATION
  Report Type: Spontaneous
  Country: US (occurrence: US)
  Receive Date: 20190419
  Receipt Date: 20200427
  Transmission Date: 20200713
  Serious: Yes (Death, Hospitalization, Other)
  Sender: FDA-Public Use
  Company Number: US-JNJFOC-20190423423

PATIENT
  Age: 74 Year
  Sex: Male

DRUGS (1)
  1. XARELTO [Suspect]
     Active Substance: RIVAROXABAN
     Indication: PRODUCT USED FOR UNKNOWN INDICATION
     Dosage: 2015 THERAPY END DATE
     Route: 048
     Dates: start: 2000

REACTIONS (6)
  - Haematuria [Recovered/Resolved]
  - Non-small cell lung cancer metastatic [Fatal]
  - Respiratory failure [Fatal]
  - Cerebrovascular disorder [Unknown]
  - Lower gastrointestinal haemorrhage [Recovered/Resolved]
  - Haemorrhage [Unknown]

NARRATIVE: CASE EVENT DATE: 201411
